FAERS Safety Report 4574570-7 (Version None)
Quarter: 2005Q1

REPORT INFORMATION
  Report Type: 
  Country: None (occurrence: None)
  Receive Date: 20050204
  Receipt Date: 20050126
  Transmission Date: 20050727
  Serious: Yes (Death)
  Sender: FDA-Public Use
  Company Number: USA-2004-0017804

PATIENT
  Age: 28 Year
  Sex: Female
  Weight: 117.9 kg

DRUGS (5)
  1. OXYCONTIN [Suspect]
     Indication: PAIN
     Dosage: 40 MG,
     Dates: start: 20020101, end: 20020101
  2. OXYCODONE HYDROCHORIDE (OXYCODONE HYDROCHORIDE) [Suspect]
     Dosage: 5 MG,
  3. CYCLOBENZAPRINE HCL [Suspect]
  4. AMITRIPTYLINE HCL [Suspect]
     Dosage: 25 MG,
  5. DIAZEPAM [Suspect]

REACTIONS (5)
  - COMA [None]
  - COMPLETED SUICIDE [None]
  - DRUG TOXICITY [None]
  - HEPATIC STEATOSIS [None]
  - INTENTIONAL MISUSE [None]
